FAERS Safety Report 13035055 (Version 1)
Quarter: 2016Q4

REPORT INFORMATION
  Report Type: Report from Study
  Country: None (occurrence: US)
  Receive Date: 20161216
  Receipt Date: 20161216
  Transmission Date: 20170207
  Serious: No
  Sender: FDA-Public Use
  Company Number: US-BIOVITRUM-2015US0303

PATIENT
  Sex: Female
  Weight: 56.75 kg

DRUGS (7)
  1. FOLIC ACID. [Concomitant]
     Active Substance: FOLIC ACID
     Route: 048
  2. LIPITOR [Concomitant]
     Active Substance: ATORVASTATIN CALCIUM
     Route: 048
  3. CYNTHROID [Concomitant]
     Route: 048
  4. LEUCOVORIN. [Concomitant]
     Active Substance: LEUCOVORIN
     Route: 048
  5. CALCIUM, CENTRUM SILVER, VIT D [Concomitant]
     Route: 048
  6. KINERET [Suspect]
     Active Substance: ANAKINRA
     Route: 058
  7. METHOTREXATE. [Concomitant]
     Active Substance: METHOTREXATE
     Route: 048

REACTIONS (2)
  - Injection site rash [Not Recovered/Not Resolved]
  - Injection site swelling [Not Recovered/Not Resolved]
